FAERS Safety Report 4426508-0 (Version None)
Quarter: 2004Q3

REPORT INFORMATION
  Report Type: 
  Country: None (occurrence: None)
  Receive Date: 20040812
  Receipt Date: 20040812
  Transmission Date: 20050211
  Serious: Yes (Hospitalization)
  Sender: FDA-Public Use
  Company Number: None

PATIENT
  Age: 56 Year
  Sex: Male
  Weight: 47.1 kg

DRUGS (8)
  1. GLYBURIDE [Suspect]
     Indication: DIABETES MELLITUS NON-INSULIN-DEPENDENT
     Dosage: 10MG  BID   ORAL
     Route: 048
  2. NPH INSULIN [Suspect]
     Dosage: 20 UNITS   BID   SUBCUTANEOUS
     Route: 058
  3. DICLOFENAC [Concomitant]
  4. LISINOPRIL [Concomitant]
  5. METFORMIN HCL [Concomitant]
  6. OXYBUTYNIN CHLORIDE [Concomitant]
  7. OSMOLITE [Concomitant]
  8. GLAUCOMA EYE DROPS [Concomitant]

REACTIONS (2)
  - BLOOD GLUCOSE DECREASED [None]
  - COMA [None]
